FAERS Safety Report 8179356-2 (Version None)
Quarter: 2012Q1

REPORT INFORMATION
  Report Type: 
  Country: None (occurrence: None)
  Receive Date: 20120302
  Receipt Date: 20120222
  Transmission Date: 20120608
  Serious: Yes (Hospitalization)
  Sender: FDA-Public Use
  Company Number: JP-JNJFOC-20110910733

PATIENT
  Sex: Male

DRUGS (8)
  1. TOPIRAMATE [Suspect]
     Route: 048
     Dates: start: 20101215, end: 20101221
  2. SYMMETREL [Concomitant]
     Route: 048
     Dates: start: 20091210, end: 20110202
  3. SERMION [Concomitant]
     Route: 048
     Dates: start: 20101026, end: 20110202
  4. TOPIRAMATE [Suspect]
     Route: 048
     Dates: start: 20101229, end: 20110121
  5. CALBLOCK [Concomitant]
     Route: 048
     Dates: start: 20090517, end: 20110202
  6. TOPIRAMATE [Suspect]
     Indication: EPILEPSY
     Route: 048
     Dates: start: 20101208, end: 20101214
  7. TOPIRAMATE [Suspect]
     Route: 048
     Dates: start: 20101222, end: 20101228
  8. DEPAKENE [Concomitant]
     Indication: EPILEPSY
     Route: 048
     Dates: start: 20100525, end: 20110121

REACTIONS (3)
  - HYPERNATRAEMIA [None]
  - DECREASED APPETITE [None]
  - ILEUS [None]
